FAERS Safety Report 6409437-2 (Version None)
Quarter: 2009Q4

REPORT INFORMATION
  Report Type: 
  Country: None (occurrence: None)
  Receive Date: 20091019
  Receipt Date: 20091019
  Transmission Date: 20100525
  Serious: Yes (Life-Threatening)
  Sender: FDA-Public Use
  Company Number: None

PATIENT
  Sex: Female
  Weight: 108.8633 kg

DRUGS (2)
  1. TOPAMAX [Suspect]
     Indication: DIZZINESS
     Dosage: 25MG TWICE DAILY PO
     Route: 048
     Dates: start: 20060401, end: 20090301
  2. TOPAMAX [Suspect]
     Indication: HEADACHE
     Dosage: 25MG TWICE DAILY PO
     Route: 048
     Dates: start: 20060401, end: 20090301

REACTIONS (4)
  - AMMONIA INCREASED [None]
  - CONFUSIONAL STATE [None]
  - HYPOGLYCAEMIA [None]
  - MEMORY IMPAIRMENT [None]
